FAERS Safety Report 18676010 (Version 1)
Quarter: 2020Q4

REPORT INFORMATION
  Report Type: Spontaneous
  Country: US (occurrence: US)
  Receive Date: 20201229
  Receipt Date: 20201229
  Transmission Date: 20210114
  Serious: Yes (Death)
  Sender: FDA-Public Use
  Company Number: US-ROCHE-2741047

PATIENT
  Sex: Male

DRUGS (12)
  1. ONDANSETRON [Concomitant]
     Active Substance: ONDANSETRON
  2. SODIUM CHLORIDE. [Concomitant]
     Active Substance: SODIUM CHLORIDE
  3. PROVENTIL [Concomitant]
     Active Substance: ALBUTEROL
  4. ZELBORAF [Suspect]
     Active Substance: VEMURAFENIB
     Indication: MALIGNANT MELANOMA
     Dosage: TAKE 4 TABLETS (960 MG ) ONGOING: NO
     Route: 048
     Dates: start: 20201020, end: 20201209
  5. POTASSIUM CHLORIDE. [Concomitant]
     Active Substance: POTASSIUM CHLORIDE
  6. XARELTO [Concomitant]
     Active Substance: RIVAROXABAN
  7. MONTELUKAST [Concomitant]
     Active Substance: MONTELUKAST SODIUM
  8. ATOMOXETINE. [Concomitant]
     Active Substance: ATOMOXETINE HYDROCHLORIDE
  9. FLUOXETINE [Concomitant]
     Active Substance: FLUOXETINE HYDROCHLORIDE
  10. OLANZAPINE. [Concomitant]
     Active Substance: OLANZAPINE
  11. SYMBICORT [Concomitant]
     Active Substance: BUDESONIDE\FORMOTEROL FUMARATE DIHYDRATE
  12. SPIRIVA [Concomitant]
     Active Substance: TIOTROPIUM BROMIDE MONOHYDRATE

REACTIONS (1)
  - Death [Fatal]
